FAERS Safety Report 9886036 (Version 1)
Quarter: 2014Q1

REPORT INFORMATION
  Report Type: Spontaneous
  Country: US (occurrence: US)
  Receive Date: 20140210
  Receipt Date: 20140210
  Transmission Date: 20141002
  Serious: Yes (Death, Hospitalization, Other)
  Sender: FDA-Public Use
  Company Number: US-WATSON-2014-01756

PATIENT
  Age: 64 Year
  Sex: Female

DRUGS (2)
  1. HYDROXYCHLOROQUINE SULFATE (WATSON LABORATORIES) [Suspect]
     Indication: RHEUMATOID ARTHRITIS
     Dosage: 200 MG, DAILY
     Route: 065
  2. HYDROXYCHLOROQUINE SULFATE (WATSON LABORATORIES) [Suspect]
     Dosage: UNK
     Route: 065

REACTIONS (10)
  - Cytotoxic cardiomyopathy [Fatal]
  - Myopathy toxic [Fatal]
  - Respiratory failure [Fatal]
  - Sick sinus syndrome [Unknown]
  - Atrial fibrillation [Unknown]
  - Renal impairment [Not Recovered/Not Resolved]
  - Oedema peripheral [Not Recovered/Not Resolved]
  - Thrombocytopenia [Not Recovered/Not Resolved]
  - Abnormal loss of weight [Unknown]
  - Altered state of consciousness [Not Recovered/Not Resolved]
